FAERS Safety Report 7745138 (Version 10)
Quarter: 2018Q3

REPORT INFORMATION
  Report Type: Report from Study
  Country: JP (occurrence: JP)
  Receive Date: 20101231
  Receipt Date: 20180914
  Transmission Date: 20181010
  Serious: Yes (Hospitalization, Other)
  Sender: FDA-Public Use
  Company Number: PHHY2010JP87996

PATIENT
  Age: 57 Year
  Sex: Male
  Weight: 54 kg

DRUGS (14)
  1. TASIGNA [Suspect]
     Active Substance: NILOTINIB
     Dosage: 400 MG, BID
     Route: 048
  2. AMARYL [Concomitant]
     Active Substance: GLIMEPIRIDE
     Dosage: 2.5 MG, QD
     Route: 048
     Dates: start: 20090915, end: 20100601
  3. ETIZOLAM [Concomitant]
     Active Substance: ETIZOLAM
     Indication: INSOMNIA
     Dosage: 0.5 MG, QD
     Route: 048
  4. TASIGNA [Suspect]
     Active Substance: NILOTINIB
     Dosage: 400 MG, BID
     Route: 048
  5. DASATINIB. [Suspect]
     Active Substance: DASATINIB
     Dosage: 70 MG, QD
     Route: 065
  6. DASATINIB. [Suspect]
     Active Substance: DASATINIB
     Dosage: 50 MG, QD
     Route: 065
  7. DASATINIB. [Suspect]
     Active Substance: DASATINIB
     Indication: CHRONIC MYELOID LEUKAEMIA
     Dosage: 100 MG, QD
     Route: 065
  8. BASEN [Concomitant]
     Active Substance: VOGLIBOSE
     Indication: DIABETES MELLITUS
     Dosage: 0.6 MG, QD
     Route: 048
  9. VOGLIBOSE [Concomitant]
     Active Substance: VOGLIBOSE
     Indication: DIABETES MELLITUS
     Dosage: 0.9 MG, QD
     Route: 048
     Dates: start: 20090912
  10. TASIGNA [Suspect]
     Active Substance: NILOTINIB
     Indication: CHRONIC MYELOID LEUKAEMIA
     Dosage: 400 MG, BID
     Route: 048
     Dates: start: 20090622
  11. AMARYL [Concomitant]
     Active Substance: GLIMEPIRIDE
     Dosage: 3 MG, QD
     Route: 048
     Dates: start: 20100602
  12. AMARYL [Concomitant]
     Active Substance: GLIMEPIRIDE
     Indication: DIABETES MELLITUS
     Dosage: 1 MG, QD
     Route: 048
     Dates: end: 20090914
  13. MYSLEE [Concomitant]
     Active Substance: ZOLPIDEM TARTRATE
     Indication: INSOMNIA
     Dosage: 5 MG, QD
     Route: 048
  14. ALLORINE [Concomitant]
     Indication: PROPHYLAXIS
     Dosage: 100 MG, QD
     Route: 048
     Dates: start: 20090713, end: 20090921

REACTIONS (12)
  - Pyrexia [Unknown]
  - Dyspnoea [Unknown]
  - Pancytopenia [Unknown]
  - Pruritus [Unknown]
  - Electrocardiogram QT prolonged [Recovered/Resolved]
  - Pleural effusion [Recovered/Resolved]
  - Blood lactate dehydrogenase increased [Recovered/Resolved]
  - Rash [Unknown]
  - Blood potassium decreased [Recovered/Resolved]
  - Hepatic steatosis [Not Recovered/Not Resolved]
  - Diabetes mellitus [Recovered/Resolved]
  - Drug ineffective [Unknown]

NARRATIVE: CASE EVENT DATE: 20080823
